FAERS Safety Report 11264689 (Version 2)
Quarter: 2017Q1

REPORT INFORMATION
  Report Type: Spontaneous
  Country: US (occurrence: US)
  Receive Date: 20150713
  Receipt Date: 20170125
  Transmission Date: 20170428
  Serious: Yes (Hospitalization)
  Sender: FDA-Public Use
  Company Number: US-PFIZER INC-2015229459

PATIENT
  Age: 33 Year
  Sex: Female

DRUGS (1)
  1. REVATIO [Suspect]
     Active Substance: SILDENAFIL CITRATE
     Dosage: 100 MG, 3X/DAY
     Route: 048

REACTIONS (6)
  - Dyspnoea [Unknown]
  - Speech disorder [Unknown]
  - Intentional overdose [Unknown]
  - Abdominal distension [Unknown]
  - Malaise [Unknown]
  - Fatigue [Not Recovered/Not Resolved]
